FAERS Safety Report 10522797 (Version 1)
Quarter: 2014Q4

REPORT INFORMATION
  Report Type: Report from Study
  Country: US (occurrence: US)
  Receive Date: 20141016
  Receipt Date: 20141016
  Transmission Date: 20150528
  Serious: Yes (Hospitalization)
  Sender: FDA-Public Use
  Company Number: US-TEVA-514720USA

PATIENT
  Age: 59 Year
  Sex: Male

DRUGS (5)
  1. LORTAB (HYDROCODONE BITARTATE/ ACETAMINOPHEN) (VICODIN) [Suspect]
     Active Substance: ACETAMINOPHEN\HYDROCODONE BITARTRATE
     Indication: PRODUCT USED FOR UNKNOWN INDICATION
     Dosage: 10 MILLIGRAM DAILY; PRN
     Route: 048
     Dates: start: 1994
  2. METFORMIN [Suspect]
     Active Substance: METFORMIN HYDROCHLORIDE
     Indication: TYPE 2 DIABETES MELLITUS
     Dosage: 2000 MILLIGRAM DAILY;
     Route: 048
     Dates: start: 201210
  3. LORCASERIN (LORCASERIN) (BLINDED) [Suspect]
     Active Substance: LORCASERIN HYDROCHLORIDE
     Indication: WEIGHT CONTROL
     Route: 048
     Dates: start: 20140811
  4. MULTIVITAMIN(VIGRAN) [Concomitant]
     Active Substance: VITAMINS
     Dates: start: 1990
  5. ZIAC (CEFIXIME) [Concomitant]
     Dosage: 10 MILLIGRAM DAILY;

REACTIONS (2)
  - Vomiting [Not Recovered/Not Resolved]
  - Syncope [Not Recovered/Not Resolved]

NARRATIVE: CASE EVENT DATE: 20140927
